FAERS Safety Report 9189675 (Version 2)
Quarter: 2013Q2

REPORT INFORMATION
  Report Type: Spontaneous
  Country: US (occurrence: None)
  Receive Date: 20120703
  Receipt Date: 20121031
  Transmission Date: 20140414
  Serious: Yes (Hospitalization, Other)
  Sender: FDA-Public Use
  Company Number: PHEH2012US007262

PATIENT
  Age: 45 Year
  Sex: Female

DRUGS (1)
  1. GILENYA (FTY) CAPSULE [Suspect]
     Route: 048
     Dates: start: 20110831

REACTIONS (2)
  - Pneumonia [None]
  - Lymphocyte count decreased [None]
